FAERS Safety Report 5143140-4 (Version None)
Quarter: 2006Q4

REPORT INFORMATION
  Report Type: 
  Country: None (occurrence: None)
  Receive Date: 20061103
  Receipt Date: 20061018
  Transmission Date: 20070319
  Serious: Yes (Hospitalization)
  Sender: FDA-Public Use
  Company Number: GB-SP-2006-02778

PATIENT
  Age: 73 Year
  Sex: Male

DRUGS (3)
  1. IMMUCYST [Suspect]
     Indication: BLADDER CANCER
     Route: 043
     Dates: start: 20061009
  2. ASPIRIN [Concomitant]
     Indication: CARDIOVASCULAR DISORDER
  3. CLOPIDOGREL [Concomitant]
     Indication: CARDIOVASCULAR DISORDER

REACTIONS (3)
  - ARTHRALGIA [None]
  - INFLUENZA LIKE ILLNESS [None]
  - OEDEMA PERIPHERAL [None]
